FAERS Safety Report 16194653 (Version 1)
Quarter: 2019Q2

REPORT INFORMATION
  Report Type: Spontaneous
  Country: US (occurrence: US)
  Receive Date: 20190414
  Receipt Date: 20190414
  Transmission Date: 20190711
  Serious: Yes (Other)
  Sender: FDA-Public Use
  Company Number: PHHY2019US082807

PATIENT
  Age: 68 Year
  Sex: Male

DRUGS (5)
  1. OLANZAPINE. [Suspect]
     Active Substance: OLANZAPINE
     Indication: CYCLOTHYMIC DISORDER
     Dosage: 10 MG, QD
     Route: 048
  2. DIVALPROEX SODIUM. [Suspect]
     Active Substance: DIVALPROEX SODIUM
     Indication: CYCLOTHYMIC DISORDER
     Dosage: 1250 MG, QD
     Route: 065
  3. RISPERIDONE. [Suspect]
     Active Substance: RISPERIDONE
     Indication: CYCLOTHYMIC DISORDER
     Dosage: 8 MG, QD
     Route: 048
  4. INVEGA SUSTENNA [Suspect]
     Active Substance: PALIPERIDONE PALMITATE
     Indication: CYCLOTHYMIC DISORDER
     Dosage: 234 MG, UNK
     Route: 065
  5. INVEGA SUSTENNA [Suspect]
     Active Substance: PALIPERIDONE PALMITATE
     Dosage: 156 MG, UNK
     Route: 065

REACTIONS (10)
  - Cogwheel rigidity [Unknown]
  - Dysphonia [Unknown]
  - Speech disorder [Unknown]
  - Movement disorder [Unknown]
  - Sedation [Unknown]
  - Parkinsonism [Unknown]
  - Gait disturbance [Unknown]
  - Salivary hypersecretion [Unknown]
  - Therapeutic response decreased [Unknown]
  - Hypomania [Unknown]
